FAERS Safety Report 19622823 (Version 3)
Quarter: 2022Q1

REPORT INFORMATION
  Report Type: Spontaneous
  Country: US (occurrence: US)
  Receive Date: 20210728
  Receipt Date: 20220214
  Transmission Date: 20220423
  Serious: Yes (Death, Hospitalization, Other)
  Sender: FDA-Public Use
  Company Number: US-VERTEX PHARMACEUTICALS-2021-011109

PATIENT
  Age: 39 Year
  Sex: Male

DRUGS (22)
  1. TRIKAFTA [Suspect]
     Active Substance: ELEXACAFTOR\IVACAFTOR\TEZACAFTOR
     Indication: Cystic fibrosis
     Dosage: STANDARD
     Route: 048
     Dates: start: 20200605, end: 20210315
  2. PROVENTIL [Concomitant]
     Active Substance: ALBUTEROL
     Indication: Wheezing
     Dosage: TAKE 3ML (2.5MG) BY NEB EVERY 6 HRS
     Dates: start: 20210614
  3. COLESTID [Concomitant]
     Active Substance: COLESTIPOL HYDROCHLORIDE
     Dosage: TAKE 2 TABS (2G) TWICE
     Route: 048
     Dates: start: 20210614
  4. LASIX [Concomitant]
     Active Substance: FUROSEMIDE
     Dosage: TAKE 2TABS(40MG)
     Route: 048
     Dates: start: 20210614
  5. CREON [Concomitant]
     Active Substance: PANCRELIPASE AMYLASE\PANCRELIPASE LIPASE\PANCRELIPASE PROTEASE
     Dosage: TAKE 1CAPS, THRICE
     Route: 048
     Dates: start: 20210614
  6. ZOLOFT [Concomitant]
     Active Substance: SERTRALINE HYDROCHLORIDE
     Dosage: TAKE 1TAB(50MG)
     Route: 048
     Dates: start: 20210614
  7. RETINOL [Concomitant]
     Active Substance: RETINOL
     Dosage: TAKE 1 CAPSULE DAILY
     Route: 048
  8. VITAMIN E [Concomitant]
     Active Substance: .ALPHA.-TOCOPHEROL
     Dosage: TAKE 1TAB DAILY
     Route: 048
     Dates: start: 20210513
  9. AMITIZA [Concomitant]
     Active Substance: LUBIPROSTONE
     Dosage: TAKE1 CAPSULE (24MCH) TWICE
     Route: 048
  10. MEPHYTON [Concomitant]
     Active Substance: PHYTONADIONE
     Indication: Vitamin K deficiency
     Dosage: TAKE 1TAB DAILY
     Route: 048
     Dates: start: 20210504
  11. COLCRYS [Concomitant]
     Active Substance: COLCHICINE
     Indication: Gout
     Dosage: TAKE0.5TAB (0.3MG) DAILY
     Route: 048
     Dates: start: 20210503
  12. ALDACTONE [Concomitant]
     Active Substance: SPIRONOLACTONE
     Dosage: TAKE1 TAB (100MG) DAILY
     Route: 048
     Dates: start: 20210503
  13. ACTIGALL [Concomitant]
     Active Substance: URSODIOL
     Dosage: TAKE 3CAPSULES (900MCG)IN AM AND 2CAPS(600MG) PM
     Dates: start: 20210503
  14. PROVENTIL HFA [SALBUTAMOL] [Concomitant]
     Dosage: INHALE 2PUFFS INTO LUNGS EVERY 4HRS
     Dates: start: 20210319
  15. PULMOZYME [Concomitant]
     Active Substance: DORNASE ALFA
     Dosage: TAKE 2.5MG DAILY
     Route: 048
     Dates: start: 20210319
  16. CLINDAGEL [Concomitant]
     Active Substance: CLINDAMYCIN PHOSPHATE
     Dosage: APPLY TOPICALLY TO AFFECTED AREA 2 TIMES DAILY
     Route: 061
     Dates: start: 20201103
  17. CHLORHEXIDINE GLUCONATE [Concomitant]
     Active Substance: CHLORHEXIDINE GLUCONATE
     Dosage: UNK
     Route: 061
     Dates: start: 20201103
  18. VITAMIN D3 [Concomitant]
     Active Substance: CHOLECALCIFEROL
     Dosage: TAKE 2CAPSULES BY MOUTH 2 TIMES
     Route: 048
  19. CHRONULAC [Concomitant]
     Active Substance: LACTULOSE
     Dosage: TAKE 15ML(10GMS) ,2TIMES
     Route: 048
     Dates: start: 20210219
  20. ATARAX [Concomitant]
     Active Substance: HYDROXYZINE HYDROCHLORIDE
     Indication: Pruritus
     Dosage: TAKE 1TAB
     Route: 048
     Dates: start: 20210219
  21. MIRALAX [Concomitant]
     Active Substance: POLYETHYLENE GLYCOL 3350
     Indication: Constipation
     Dosage: TAKE 34GM, AS NEEDED
     Dates: start: 20210319
  22. PRILOSEC [Concomitant]
     Active Substance: OMEPRAZOLE MAGNESIUM
     Dosage: TAKE1 CAPSULE EVERY MORNING
     Route: 048
     Dates: start: 20210319

REACTIONS (8)
  - Hepatic failure [Fatal]
  - Septic shock [Fatal]
  - Infective pulmonary exacerbation of cystic fibrosis [Unknown]
  - Acute respiratory failure [Unknown]
  - Pneumonia bacterial [Unknown]
  - Acute kidney injury [Unknown]
  - Cholangitis sclerosing [Unknown]
  - Hepatic cirrhosis [Unknown]

NARRATIVE: CASE EVENT DATE: 20201101
